FAERS Safety Report 8920118 (Version 1)
Quarter: 2012Q4

REPORT INFORMATION
  Report Type: Report from Study
  Country: GB (occurrence: GB)
  Receive Date: 20121122
  Receipt Date: 20121122
  Transmission Date: 20130627
  Serious: Yes (Other)
  Sender: FDA-Public Use
  Company Number: GB-ROCHE-1157893

PATIENT
  Sex: Male
  Weight: 105.41 kg

DRUGS (10)
  1. ORLISTAT [Suspect]
     Indication: OBESITY
     Route: 048
     Dates: start: 20080205
  2. PHENOBARBITAL [Concomitant]
     Indication: EPILEPSY
     Route: 048
  3. ASPRIN-EC [Concomitant]
     Route: 048
  4. BENDROFLUMETIAZID [Concomitant]
     Route: 048
  5. EPANUTIN [Concomitant]
     Indication: EPILEPSY
     Route: 048
  6. ATENOLOL [Concomitant]
     Route: 048
  7. KEPPRA [Concomitant]
     Indication: EPILEPSY
     Route: 048
  8. SIMVASTATIN [Concomitant]
     Route: 048
     Dates: end: 20080204
  9. LIPITOR [Concomitant]
     Route: 048
     Dates: start: 20080205
  10. CITALOPRAM [Concomitant]
     Indication: DEPRESSION
     Route: 048

REACTIONS (2)
  - Convulsion [Not Recovered/Not Resolved]
  - Fatigue [Not Recovered/Not Resolved]
